FAERS Safety Report 8240308-5 (Version None)
Quarter: 2012Q1

REPORT INFORMATION
  Report Type: 
  Country: None (occurrence: None)
  Receive Date: 20120328
  Receipt Date: 20120320
  Transmission Date: 20120608
  Serious: Yes (Other)
  Sender: FDA-Public Use
  Company Number: US-ELI_LILLY_AND_COMPANY-US201008009014

PATIENT
  Sex: Female

DRUGS (5)
  1. FORTEO [Suspect]
     Dosage: 20 UG, DAILY (1/D)
     Route: 065
     Dates: start: 20101117
  2. FORTEO [Suspect]
     Dosage: 20 UG, QD
     Route: 065
  3. FORTEO [Suspect]
     Dosage: 20 UG, QD
  4. FORTEO [Suspect]
     Dosage: 20 UG, DAILY (1/D)
     Route: 065
  5. FORTEO [Suspect]
     Indication: OSTEOPOROSIS
     Dosage: 20 UG, DAILY (1/D)
     Route: 065
     Dates: start: 20100830

REACTIONS (12)
  - TOOTH FRACTURE [None]
  - SCLERODERMA [None]
  - SENSATION OF HEAVINESS [None]
  - PYREXIA [None]
  - MACULAR DEGENERATION [None]
  - VISUAL IMPAIRMENT [None]
  - MUSCULAR WEAKNESS [None]
  - ANXIETY [None]
  - GASTRITIS [None]
  - STRESS [None]
  - RETINAL HAEMORRHAGE [None]
  - BLOOD PHOSPHORUS INCREASED [None]
